FAERS Safety Report 8540092 (Version 4)
Quarter: 2013Q1

REPORT INFORMATION
  Report Type: Spontaneous
  Country: US (occurrence: US)
  Receive Date: 20120502
  Receipt Date: 20130315
  Transmission Date: 20140127
  Serious: Yes (Death, Hospitalization)
  Sender: FDA-Public Use
  Company Number: PHEH2012US008869

PATIENT
  Sex: Female

DRUGS (7)
  1. GLEEVEC [Suspect]
     Indication: LYMPHOCYTIC LEUKAEMIA
     Dosage: 400 MG, DAILY
     Route: 048
     Dates: start: 20120120, end: 20120414
  2. NEUPOGEN [Concomitant]
  3. CYCLOPHOSPHAMIDE [Concomitant]
  4. VINCRISTINE [Concomitant]
  5. DOXORUBICIN [Concomitant]
  6. METHOTREXATE [Concomitant]
  7. CYTARABINE [Concomitant]

REACTIONS (5)
  - Respiratory failure [Fatal]
  - Dyspnoea [Fatal]
  - Pneumonia aspiration [Fatal]
  - Acute lymphocytic leukaemia [Fatal]
  - Vomiting [Unknown]
